FAERS Safety Report 15186051 (Version 3)
Quarter: 2019Q2

REPORT INFORMATION
  Report Type: Spontaneous
  Country: JP (occurrence: JP)
  Receive Date: 20180723
  Receipt Date: 20190419
  Transmission Date: 20190711
  Serious: Yes (Life-Threatening)
  Sender: FDA-Public Use
  Company Number: JP-009507513-1807JPN002834

PATIENT
  Age: 70 Year
  Sex: Male

DRUGS (19)
  1. REFLEX [Suspect]
     Active Substance: MIRTAZAPINE
     Dosage: 30 MILLIGRAM, QD
     Route: 048
     Dates: start: 20180614, end: 20180615
  2. CILNIDIPINE [Concomitant]
     Active Substance: CILNIDIPINE
     Dosage: 20 MILLIGRAM, QD
     Route: 048
     Dates: start: 20180614, end: 20180615
  3. REFLEX [Suspect]
     Active Substance: MIRTAZAPINE
     Dosage: 15 MG, QD
     Route: 048
     Dates: start: 20091216, end: 20101109
  4. SENNA [Concomitant]
     Active Substance: SENNA LEAF\SENNOSIDES\SENNOSIDES A AND B
     Dosage: 20 MILLIGRAM, QD
     Route: 048
     Dates: start: 20180614, end: 20180615
  5. BROTIZOLAM [Concomitant]
     Active Substance: BROTIZOLAM
     Dosage: 0.25 MG, DAILY
     Route: 048
     Dates: start: 20180614, end: 20180615
  6. REFLEX [Suspect]
     Active Substance: MIRTAZAPINE
     Dosage: 30 MG, QD
     Route: 048
     Dates: start: 20101110, end: 20180611
  7. BROTIZOLAM [Concomitant]
     Active Substance: BROTIZOLAM
     Dosage: 0.25 MG, DAILY
     Route: 048
     Dates: start: 20180629
  8. REFLEX [Suspect]
     Active Substance: MIRTAZAPINE
     Indication: DEPRESSION
     Dosage: 15 MG, QD
     Route: 048
     Dates: start: 20091014, end: 20091020
  9. BROTIZOLAM [Concomitant]
     Active Substance: BROTIZOLAM
     Indication: INSOMNIA
     Dosage: 0.25 MG, DAILY
     Route: 048
     Dates: end: 20180611
  10. CILNIDIPINE [Concomitant]
     Active Substance: CILNIDIPINE
     Indication: HYPERTENSION
     Dosage: 20 MILLIGRAM, QD
     Route: 048
     Dates: start: 20090717, end: 20180611
  11. WYPAX [Concomitant]
     Active Substance: LORAZEPAM
     Indication: ANXIETY
     Dosage: 9 MILLIGRAM, QD
     Route: 048
     Dates: start: 20090717, end: 20180611
  12. WYPAX [Concomitant]
     Active Substance: LORAZEPAM
     Dosage: 9 MILLIGRAM, QD
     Route: 048
     Dates: start: 20180614, end: 20180615
  13. TASMOLIN (BIPERIDEN HYDROCHLORIDE) [Concomitant]
     Active Substance: BIPERIDEN HYDROCHLORIDE
     Indication: TREMOR
     Dosage: 9 MILLIGRAM, QD
     Route: 048
     Dates: end: 20180611
  14. TASMOLIN (BIPERIDEN HYDROCHLORIDE) [Concomitant]
     Active Substance: BIPERIDEN HYDROCHLORIDE
     Dosage: 9 MILLIGRAM, QD
     Route: 048
     Dates: start: 20180614, end: 20180615
  15. REFLEX [Suspect]
     Active Substance: MIRTAZAPINE
     Dosage: 30 MG, DAILY
     Route: 048
     Dates: start: 20091021, end: 20091103
  16. REFLEX [Suspect]
     Active Substance: MIRTAZAPINE
     Dosage: 15 MG, QD
     Route: 048
     Dates: start: 20091104, end: 20091209
  17. FLUNITRAZEPAM [Concomitant]
     Active Substance: FLUNITRAZEPAM
     Dosage: 9 MILLIGRAM, QD
     Route: 048
     Dates: start: 20180614, end: 20180615
  18. SENNA [Concomitant]
     Active Substance: SENNA LEAF\SENNOSIDES\SENNOSIDES A AND B
     Indication: CONSTIPATION
     Dosage: 20 MILLIGRAM, QD
     Route: 048
     Dates: start: 20090717, end: 20180611
  19. FLUNITRAZEPAM [Concomitant]
     Active Substance: FLUNITRAZEPAM
     Indication: INSOMNIA
     Dosage: 9 MILLIGRAM, QD
     Route: 048
     Dates: start: 20090717, end: 20180611

REACTIONS (2)
  - Neuroleptic malignant syndrome [Recovered/Resolved]
  - Rhabdomyolysis [Recovered/Resolved]

NARRATIVE: CASE EVENT DATE: 20180615
